FAERS Safety Report 6065271-7 (Version None)
Quarter: 2009Q1

REPORT INFORMATION
  Report Type: 
  Country: None (occurrence: None)
  Receive Date: 20090204
  Receipt Date: 20090130
  Transmission Date: 20090719
  Serious: Yes (Other)
  Sender: FDA-Public Use
  Company Number: US-ASTRAZENECA-2009UW01063

PATIENT
  Age: 59 Year
  Sex: Female
  Weight: 63.5 kg

DRUGS (7)
  1. ARIMIDEX [Suspect]
     Indication: BREAST CANCER FEMALE
     Dosage: 1 MG
     Route: 048
     Dates: start: 20071101
  2. LIPITOR [Concomitant]
     Dosage: EVERY OTHER DAY
  3. ZANTAC [Concomitant]
     Dosage: 150 MG
  4. RHINOCORT [Concomitant]
     Route: 055
  5. TYLENOL [Concomitant]
     Dosage: PRN
  6. ADVIL LIQUI-GELS [Concomitant]
     Dosage: PRN
  7. MULTI-VITAMINS [Concomitant]

REACTIONS (12)
  - ARTHROPATHY [None]
  - BODY TEMPERATURE [None]
  - CARPAL TUNNEL SYNDROME [None]
  - DRY MOUTH [None]
  - DRY SKIN [None]
  - GRIP STRENGTH DECREASED [None]
  - HYPOAESTHESIA [None]
  - LIMB OPERATION [None]
  - OEDEMA PERIPHERAL [None]
  - SLEEP APNOEA SYNDROME [None]
  - TRIGGER FINGER [None]
  - WEIGHT INCREASED [None]
